FAERS Safety Report 6046229-0 (Version None)
Quarter: 2009Q1

REPORT INFORMATION
  Report Type: 
  Country: None (occurrence: None)
  Receive Date: 20090122
  Receipt Date: 20090115
  Transmission Date: 20090719
  Serious: Yes (Hospitalization)
  Sender: FDA-Public Use
  Company Number: FR-BRISTOL-MYERS SQUIBB COMPANY-14477152

PATIENT
  Age: 74 Year
  Sex: Female

DRUGS (12)
  1. CORGARD [Suspect]
     Route: 048
     Dates: end: 20080821
  2. CORDARONE [Suspect]
     Dosage: TABS
     Route: 048
     Dates: end: 20080822
  3. LASILIX [Suspect]
     Dosage: 1 DF = 60/40 MG
     Route: 048
  4. LOGIMAX [Suspect]
     Route: 048
     Dates: end: 20080826
  5. NITROGLYCERIN [Concomitant]
     Route: 062
  6. KARDEGIC [Concomitant]
     Route: 048
  7. UMULINE ZINC COMPOSE [Concomitant]
     Indication: INSULIN-REQUIRING TYPE 2 DIABETES MELLITUS
  8. METFORMIN HCL [Concomitant]
     Indication: INSULIN-REQUIRING TYPE 2 DIABETES MELLITUS
     Route: 048
  9. NOVONORM [Concomitant]
     Indication: INSULIN-REQUIRING TYPE 2 DIABETES MELLITUS
     Route: 048
  10. FUROSEMIDE [Concomitant]
  11. DIFFU-K [Concomitant]
     Route: 048
  12. TAHOR [Concomitant]
     Route: 048

REACTIONS (4)
  - BRADYCARDIA [None]
  - HYPOTENSION [None]
  - MALAISE [None]
  - RENAL FAILURE ACUTE [None]
